FAERS Safety Report 10627954 (Version 1)
Quarter: 2014Q4

REPORT INFORMATION
  Report Type: Spontaneous
  Country: US (occurrence: US)
  Receive Date: 20141205
  Receipt Date: 20141205
  Transmission Date: 20150529
  Serious: No
  Sender: FDA-Public Use
  Company Number: US-BRISTOL-MYERS SQUIBB COMPANY-21639026

PATIENT
  Sex: Male

DRUGS (1)
  1. ERBITUX [Suspect]
     Active Substance: CETUXIMAB
     Indication: THROAT CANCER
     Dosage: THERAPY RESTARTED ON JUN OR JUL14
     Dates: start: 2014

REACTIONS (2)
  - Chest pain [Unknown]
  - Neck pain [Unknown]
